FAERS Safety Report 22620701 (Version 1)
Quarter: 2023Q2

REPORT INFORMATION
  Report Type: Spontaneous
  Country: US (occurrence: US)
  Receive Date: 20230620
  Receipt Date: 20230620
  Transmission Date: 20230722
  Serious: Yes (Hospitalization, Other)
  Sender: FDA-Public Use
  Company Number: US-SA-SAC20230619001214

PATIENT
  Sex: Female
  Weight: 77.11 kg

DRUGS (1)
  1. DUPIXENT [Suspect]
     Active Substance: DUPILUMAB
     Indication: Idiopathic urticaria
     Dosage: 300 MG, QOW
     Route: 058

REACTIONS (6)
  - Cellulitis [Unknown]
  - Scratch [Unknown]
  - Anaphylactic reaction [Unknown]
  - Product dose omission issue [Unknown]
  - Gait inability [Unknown]
  - Product use in unapproved indication [Unknown]
